FAERS Safety Report 6635746-8 (Version None)
Quarter: 2010Q1

REPORT INFORMATION
  Report Type: 
  Country: None (occurrence: None)
  Receive Date: 20100309
  Receipt Date: 20100223
  Transmission Date: 20100710
  Serious: Yes (Other)
  Sender: FDA-Public Use
  Company Number: 2009SP041779

PATIENT
  Age: 46 Year
  Sex: Female

DRUGS (3)
  1. IMPLANON [Suspect]
     Indication: DRUG USE FOR UNKNOWN INDICATION
     Dosage: 1 DF;  SC
     Route: 058
     Dates: start: 20030901, end: 20060810
  2. IMPLANON [Suspect]
     Indication: DRUG USE FOR UNKNOWN INDICATION
     Dosage: 1 DF;  SC
     Route: 058
     Dates: start: 20060810
  3. IMPLANON [Suspect]

REACTIONS (4)
  - AMENORRHOEA [None]
  - ANAPHYLACTIC SHOCK [None]
  - COMPLICATION OF DEVICE REMOVAL [None]
  - DEVICE DISLOCATION [None]
